FAERS Safety Report 24332478 (Version 1)
Quarter: 2024Q3

REPORT INFORMATION
  Report Type: Spontaneous
  Country: US (occurrence: US)
  Receive Date: 20240918
  Receipt Date: 20240918
  Transmission Date: 20241017
  Serious: Yes (Other)
  Sender: ORGANON
  Company Number: US-ORGANON-O2409USA000799

PATIENT
  Sex: Male

DRUGS (10)
  1. MAXALT [Suspect]
     Active Substance: RIZATRIPTAN BENZOATE
     Indication: Migraine
     Dosage: 10 MILLIGRAM, PRN
     Route: 048
  2. NURTEC ODT [Suspect]
     Active Substance: RIMEGEPANT SULFATE
     Indication: Migraine
     Dosage: 75 MILLIGRAM, QOD
     Route: 048
     Dates: start: 202208, end: 20240118
  3. NURTEC ODT [Suspect]
     Active Substance: RIMEGEPANT SULFATE
     Dosage: 75 MILLIGRAM, PRN
     Route: 048
  4. BOTOX [Suspect]
     Active Substance: ONABOTULINUMTOXINA
     Indication: Migraine prophylaxis
     Dosage: 10 (10 TO 12 WEEKS)
     Route: 030
     Dates: start: 20231016
  5. AMITRIPTYLINE [Suspect]
     Active Substance: AMITRIPTYLINE
     Indication: Migraine prophylaxis
     Dosage: 40-50 MILLIGRAM QD
     Route: 048
     Dates: start: 20231115
  6. PROPRANOLOL [Suspect]
     Active Substance: PROPRANOLOL HYDROCHLORIDE
     Indication: Migraine prophylaxis
     Dosage: 20-30 MILLIGRAM BID
     Route: 048
     Dates: start: 20240118
  7. LIDOCAINE [Suspect]
     Active Substance: LIDOCAINE
     Indication: Migraine prophylaxis
     Dosage: 100 MICROGRAM (Q2W)
     Route: 030
     Dates: start: 20240118
  8. TYLENOL [Suspect]
     Active Substance: ACETAMINOPHEN
     Indication: Migraine
     Dosage: 1000 TO 2000 MILLIGRAM PRN
     Route: 048
  9. FROVATRIPTAN [Suspect]
     Active Substance: FROVATRIPTAN
     Indication: Migraine
     Dosage: 5-25 MILLIGRAM PRN
     Route: 048
  10. ADVIL [Suspect]
     Active Substance: IBUPROFEN\IBUPROFEN SODIUM
     Indication: Migraine
     Dosage: 500 MILLIGRAM, PRN
     Route: 048

REACTIONS (1)
  - Nonreassuring foetal heart rate pattern [Recovered/Resolved]

NARRATIVE: CASE EVENT DATE: 20240712
